FAERS Safety Report 6129693 (Version 29)
Quarter: 2014Q1

REPORT INFORMATION
  Report Type: Spontaneous
  Country: US (occurrence: US)
  Receive Date: 20060918
  Receipt Date: 20140131
  Transmission Date: 20141002
  Serious: Yes (Hospitalization, Other)
  Sender: FDA-Public Use
  Company Number: PHEH2006US11430

PATIENT
  Sex: Male
  Weight: 185 kg

DRUGS (75)
  1. AREDIA [Suspect]
     Indication: PLASMA CELL MYELOMA
     Route: 042
     Dates: start: 20020408
  2. ZOMETA [Suspect]
     Indication: PLASMA CELL MYELOMA
     Route: 042
  3. ATIVAN [Concomitant]
  4. WELLBUTRIN [Concomitant]
  5. NEURONTIN [Concomitant]
  6. AMPICILLIN [Concomitant]
  7. PROCRIT                            /00909301/ [Concomitant]
  8. THALIDOMIDE [Concomitant]
  9. COUMADIN ^DUPONT^ [Concomitant]
  10. DIOVAN [Concomitant]
  11. LASIX [Concomitant]
  12. PRILOSEC [Concomitant]
  13. LIPITOR                                 /NET/ [Concomitant]
  14. ANDROGEL [Concomitant]
  15. LANOXIN [Concomitant]
  16. AVANDIA [Concomitant]
  17. RESTORIL [Concomitant]
  18. DILTIAZEM [Concomitant]
  19. COLACE [Concomitant]
  20. DULCOLAX [Concomitant]
  21. ASA [Concomitant]
  22. VITAMIN B6 [Concomitant]
  23. VITAMIN B12 [Concomitant]
  24. METOPROLOL TARTRATE [Concomitant]
  25. LYRICA [Concomitant]
  26. TRAZODONE HYDROCHLORIDE [Concomitant]
  27. METAMUCIL [Concomitant]
  28. FENOFIBRATE [Concomitant]
  29. CALCIUM WITH VITAMIN D [Concomitant]
  30. LEVITRA [Concomitant]
  31. CHLORHEXIDINE GLUCONATE [Concomitant]
  32. AZOR (OLMESARTAN MEDOXOMIL/ AMLODIPINE BESILATE) [Concomitant]
     Dates: start: 200908
  33. PERCOCET [Concomitant]
  34. MEDROL [Concomitant]
  35. MORPHINE SULFATE [Concomitant]
  36. DIGOXIN [Concomitant]
  37. CHEMOTHERAPEUTICS NOS [Concomitant]
  38. MEGACE [Concomitant]
  39. SIMVASTATIN [Concomitant]
  40. IPRATROPIUM BROMIDE W/SALBUTAMOL [Concomitant]
  41. PREDNISONE [Concomitant]
  42. CLONIDINE [Concomitant]
  43. AMLODIPINE BESYLATE W/BENAZEPRIL [Concomitant]
  44. TEMAZEPAM [Concomitant]
  45. FISH OIL [Concomitant]
  46. HYDROCODONE W/ACETAMINOPHEN [Concomitant]
  47. PREVACID [Concomitant]
  48. PERI-COLACE [Concomitant]
  49. VICODIN [Concomitant]
  50. CLEOCIN [Concomitant]
  51. HUMALOG [Concomitant]
  52. SERZONE [Concomitant]
  53. LOPRESSOR [Concomitant]
  54. LIPITOR                                 /UNK/ [Concomitant]
  55. MAGNESIUM [Concomitant]
  56. GLUCOSAMINE SULFATE W/CHONDROITIN [Concomitant]
  57. BACITRACIN [Concomitant]
  58. LOSARTAN [Concomitant]
  59. LORAZEPAM [Concomitant]
  60. EPOETIN ALFA [Concomitant]
  61. PROCRIT                            /00909301/ [Concomitant]
  62. BUPROPION [Concomitant]
  63. PSYLLIUM [Concomitant]
  64. CALCIUM CARBONATE [Concomitant]
  65. OS-CAL [Concomitant]
  66. NIASPAN [Concomitant]
  67. TRILEPTAL ^CIBA-GEIGY^ [Concomitant]
     Dosage: 150 MG, BID
     Route: 048
  68. FUROSEMIDE [Concomitant]
  69. GABAPENTIN [Concomitant]
  70. HALCION [Concomitant]
  71. SONATA [Concomitant]
     Dosage: 10 MG, QHS
  72. TRAMADOL [Concomitant]
  73. PROTONIX [Concomitant]
  74. CEVIMELINE [Concomitant]
     Dosage: 30 MG, TID
  75. GLIPIZIDE [Concomitant]

REACTIONS (145)
  - Renal failure acute [Recovered/Resolved]
  - Osteonecrosis of jaw [Recovering/Resolving]
  - Pain [Unknown]
  - Deformity [Unknown]
  - Hypophagia [Unknown]
  - Emotional distress [Unknown]
  - Anxiety [Unknown]
  - General physical health deterioration [Unknown]
  - Decreased interest [Unknown]
  - Life expectancy shortened [Unknown]
  - Infection [Unknown]
  - Injury [Unknown]
  - Osteomyelitis [Unknown]
  - Hypotension [Unknown]
  - Pyrexia [Unknown]
  - Hypocalcaemia [Unknown]
  - Leukocytosis [Unknown]
  - Renal ischaemia [Recovered/Resolved]
  - Pneumonia [Unknown]
  - Wheezing [Unknown]
  - Insomnia [Unknown]
  - Diarrhoea [Recovering/Resolving]
  - Muscle twitching [Recovered/Resolved]
  - Presyncope [Unknown]
  - Oedema peripheral [Unknown]
  - Sinus tachycardia [Unknown]
  - Ventricular extrasystoles [Unknown]
  - Supraventricular extrasystoles [Unknown]
  - Left atrial dilatation [Unknown]
  - Cardiac valve abscess [Unknown]
  - Dyspnoea [Unknown]
  - Tachyarrhythmia [Unknown]
  - Peripheral embolism [Unknown]
  - Weight increased [Unknown]
  - Arteriosclerosis [Unknown]
  - Spinal osteoarthritis [Unknown]
  - Colitis ischaemic [Unknown]
  - Upper respiratory tract infection [Unknown]
  - Bronchitis [Unknown]
  - Somnolence [Recovering/Resolving]
  - Dysaesthesia [Unknown]
  - Neuralgia [Unknown]
  - Paraesthesia [Unknown]
  - Sinusitis [Unknown]
  - Epididymitis [Recovered/Resolved]
  - Hydrocele [Recovered/Resolved]
  - Erectile dysfunction [Unknown]
  - Constipation [Unknown]
  - International normalised ratio increased [Unknown]
  - Prothrombin time prolonged [Unknown]
  - Fatigue [Unknown]
  - Productive cough [Unknown]
  - Onychomycosis [Unknown]
  - Phlebitis [Unknown]
  - Arthralgia [Unknown]
  - Syncope [Unknown]
  - Gastrooesophageal reflux disease [Unknown]
  - Abdominal pain upper [Unknown]
  - Asthenia [Unknown]
  - Weight decreased [Unknown]
  - Anaemia [Unknown]
  - Pain in extremity [Unknown]
  - Glycosylated haemoglobin increased [Unknown]
  - Hyperlipidaemia [Unknown]
  - Blood cholesterol increased [Unknown]
  - Hypoaesthesia [Unknown]
  - Pain in jaw [Unknown]
  - Testicular swelling [Unknown]
  - Testicular pain [Unknown]
  - Libido decreased [Unknown]
  - Orchitis [Recovered/Resolved]
  - Osteoarthritis [Unknown]
  - Gynaecomastia [Unknown]
  - Pulmonary oedema [Unknown]
  - Left ventricular hypertrophy [Unknown]
  - Cardiac failure congestive [Unknown]
  - Pleural effusion [Unknown]
  - Dizziness [Unknown]
  - Loss of consciousness [Unknown]
  - Conjunctivitis [Unknown]
  - Corneal abrasion [Unknown]
  - Wound [Unknown]
  - Alopecia [Unknown]
  - Nail dystrophy [Unknown]
  - Sensory loss [Unknown]
  - Pleural fibrosis [Unknown]
  - Disturbance in attention [Unknown]
  - Intermittent claudication [Unknown]
  - Cataract [Unknown]
  - Gait disturbance [Unknown]
  - Skin injury [Unknown]
  - Limb injury [Unknown]
  - Acne [Unknown]
  - Food poisoning [Unknown]
  - Basal cell carcinoma [Unknown]
  - Gastroenteritis [Unknown]
  - Diverticulum [Unknown]
  - Blood testosterone decreased [Unknown]
  - Hypertensive nephropathy [Unknown]
  - Hypoaesthesia oral [Unknown]
  - Neurological symptom [Unknown]
  - Contusion [Unknown]
  - Subdural haematoma [Recovered/Resolved]
  - Mental status changes [Unknown]
  - Accelerated hypertension [Unknown]
  - Dysarthria [Unknown]
  - Aphasia [Unknown]
  - Extradural abscess [Unknown]
  - Vomiting [Unknown]
  - Sexual dysfunction [Unknown]
  - Convulsion [Unknown]
  - Amnesia [Unknown]
  - Sleep disorder [Unknown]
  - Enterococcal sepsis [Unknown]
  - Bone pain [Unknown]
  - Dry mouth [Unknown]
  - Paraspinal abscess [Unknown]
  - Enterococcal bacteraemia [Unknown]
  - Mass [Unknown]
  - Bone disorder [Unknown]
  - Bursitis [Unknown]
  - Osteosclerosis [Unknown]
  - Primary sequestrum [Unknown]
  - Intervertebral discitis [Unknown]
  - Chest pain [Unknown]
  - Arteriosclerosis coronary artery [Unknown]
  - Coronary artery stenosis [Unknown]
  - Chest discomfort [Unknown]
  - Dyspnoea exertional [Unknown]
  - Sputum discoloured [Unknown]
  - Mouth ulceration [Unknown]
  - Rhonchi [Unknown]
  - Microcytosis [Unknown]
  - Cough [Unknown]
  - Multimorbidity [Unknown]
  - Malaise [Unknown]
  - Overweight [Unknown]
  - Cardiac murmur [Unknown]
  - Dilatation ventricular [Unknown]
  - Facet joint syndrome [Unknown]
  - Intervertebral disc degeneration [Unknown]
  - Beta haemolytic streptococcal infection [Unknown]
  - Joint swelling [Unknown]
  - Palpitations [Unknown]
  - Angina pectoris [Unknown]
